FAERS Safety Report 5959366-3 (Version None)
Quarter: 2008Q4

REPORT INFORMATION
  Report Type: 
  Country: None (occurrence: None)
  Receive Date: 20081119
  Receipt Date: 20081119
  Transmission Date: 20090506
  Serious: No
  Sender: FDA-Public Use
  Company Number: None

PATIENT
  Sex: Male
  Weight: 67.6 kg

DRUGS (10)
  1. TEMAZEPAM [Suspect]
     Indication: INSOMNIA
     Dosage: 30MG QHS PRN PO
     Route: 048
     Dates: start: 20080512, end: 20080527
  2. RISPERIDONE [Concomitant]
  3. METOPROLOL [Concomitant]
  4. OXCARBAZEPINE [Concomitant]
  5. APAP TAB [Concomitant]
  6. DIPHENHYDRAMINE HCL [Concomitant]
  7. GABAPENTIN [Concomitant]
  8. ASPART [Concomitant]
  9. MAGNESIUM OXIDE [Concomitant]
  10. LEVOTHYROXINE SODIUM [Concomitant]

REACTIONS (3)
  - BLOOD PRESSURE DECREASED [None]
  - MIOSIS [None]
  - UNRESPONSIVE TO STIMULI [None]
